FAERS Safety Report 17238768 (Version 1)
Quarter: 2020Q1

REPORT INFORMATION
  Report Type: Spontaneous
  Country: US (occurrence: US)
  Receive Date: 20200106
  Receipt Date: 20200106
  Transmission Date: 20200409
  Serious: No
  Sender: FDA-Public Use
  Company Number: US-PACIRA-201900054

PATIENT

DRUGS (3)
  1. EPINEPHRINE. [Suspect]
     Active Substance: EPINEPHRINE
     Indication: SURGERY
     Dosage: UNK, MARCAINE/EPINEPHRINE ADMIN, USED 27 GAUGE NEEDLE, FREQUENCY SINGLE
  2. MARCAINE [Suspect]
     Active Substance: BUPIVACAINE HYDROCHLORIDE
     Indication: SURGERY
     Dosage: UNK, MARCAINE/EPINEPHRINE ADMIN, USED 27 GAUGE NEEDLE, FREQUENCY SINGLE
  3. EXPAREL [Suspect]
     Active Substance: BUPIVACAINE
     Indication: SURGERY
     Dosage: 5 ML, 27 GAUGE NEEDLE INJECTION, FREQUENCY : SINGLE

REACTIONS (2)
  - Pain [Unknown]
  - Headache [Unknown]
